FAERS Safety Report 5460614-7 (Version None)
Quarter: 2007Q3

REPORT INFORMATION
  Report Type: 
  Country: None (occurrence: None)
  Receive Date: 20070919
  Receipt Date: 20070904
  Transmission Date: 20080115
  Serious: Yes (Disabling)
  Sender: FDA-Public Use
  Company Number: CA-GENENTECH-247303

PATIENT
  Sex: Male
  Weight: 71.5 kg

DRUGS (8)
  1. AVASTIN [Suspect]
     Indication: RECTAL CANCER
     Dosage: 335 MG, UNK
     Route: 042
     Dates: start: 20070621
  2. IRINOTECAN HCL [Concomitant]
     Indication: RECTAL CANCER
  3. LEUCOVORIN CALCIUM [Concomitant]
     Indication: RECTAL CANCER
  4. FLUOROURACIL [Concomitant]
     Indication: RECTAL CANCER
  5. ONDANSETRON [Concomitant]
     Indication: RECTAL CANCER
  6. DEXAMETHASONE 0.5MG TAB [Concomitant]
     Indication: DRUG USE FOR UNKNOWN INDICATION
  7. PROCHLORPERAZINE [Concomitant]
     Indication: DRUG USE FOR UNKNOWN INDICATION
  8. NEUPOGEN [Concomitant]
     Indication: DRUG USE FOR UNKNOWN INDICATION

REACTIONS (3)
  - ASPERMIA [None]
  - DIZZINESS [None]
  - TESTICULAR PAIN [None]
